FAERS Safety Report 8525984-1 (Version None)
Quarter: 2012Q3

REPORT INFORMATION
  Report Type: 
  Country: None (occurrence: None)
  Receive Date: 20120720
  Receipt Date: 20120423
  Transmission Date: 20120928
  Serious: Yes (Death, Life-Threatening, Hospitalization)
  Sender: FDA-Public Use
  Company Number: PHHO2012FR006822

PATIENT
  Sex: Female

DRUGS (6)
  1. AMLODIPINE BESYLATE [Concomitant]
     Indication: HYPERTENSION
     Dosage: 10 MG, QD
     Route: 048
     Dates: start: 20111128
  2. RIVASTIGMINE [Suspect]
     Indication: CONFUSIONAL STATE
     Dosage: UNK
     Route: 062
     Dates: start: 20111129, end: 20111206
  3. ESOMEPRAZOLE [Concomitant]
     Indication: PAIN
     Dosage: 1 DF, QD
     Route: 048
     Dates: start: 20111205
  4. LOVENOX [Concomitant]
     Dosage: 1 DF, QD
     Route: 048
     Dates: start: 20111128
  5. KERLONE [Concomitant]
     Indication: HYPERTENSION
     Dosage: 1 DF, QD
  6. ACETAMINOPHEN [Concomitant]
     Dosage: UNK
     Route: 048
     Dates: start: 20111205

REACTIONS (3)
  - ENCEPHALOPATHY [None]
  - ALTERED STATE OF CONSCIOUSNESS [None]
  - ASPIRATION [None]
